FAERS Safety Report 9805191 (Version 1)
Quarter: 2014Q1

REPORT INFORMATION
  Report Type: Report from Study
  Country: CN (occurrence: CN)
  Receive Date: 20140109
  Receipt Date: 20140109
  Transmission Date: 20141002
  Serious: Yes (Death, Other)
  Sender: FDA-Public Use
  Company Number: CN-ROCHE-1330087

PATIENT
  Age: 57 Year
  Sex: Female

DRUGS (4)
  1. HERCEPTIN [Suspect]
     Indication: BREAST CANCER
     Route: 041
     Dates: start: 2012
  2. HERCEPTIN [Suspect]
     Route: 041
     Dates: start: 2013
  3. PACLITAXEL [Concomitant]
     Indication: BREAST CANCER
     Route: 041
  4. VINORELBINE [Concomitant]
     Indication: BREAST CANCER
     Route: 041

REACTIONS (3)
  - Disease progression [Fatal]
  - Metastases to liver [Unknown]
  - Metastases to central nervous system [Unknown]
